FAERS Safety Report 12180308 (Version 1)
Quarter: 2016Q1

REPORT INFORMATION
  Report Type: Spontaneous
  Country: US (occurrence: None)
  Receive Date: 20160314
  Receipt Date: 20160314
  Transmission Date: 20160526
  Serious: Yes (Hospitalization)
  Sender: FDA-Public Use
  Company Number: None

PATIENT
  Age: 32 Year
  Sex: Female

DRUGS (2)
  1. TRAZODONE 50 TEVA [Suspect]
     Active Substance: TRAZODONE HYDROCHLORIDE
     Indication: INSOMNIA
     Dosage: 50 1 PO QD PO
     Route: 048
     Dates: start: 20160302
  2. TRAMADOL 50 TEVA [Suspect]
     Active Substance: TRAMADOL
     Indication: PAIN
     Dosage: 50 1 PO QD PO
     Route: 048
     Dates: start: 20160203

REACTIONS (1)
  - Serotonin syndrome [None]

NARRATIVE: CASE EVENT DATE: 20160313
